FAERS Safety Report 5849085-6 (Version None)
Quarter: 2008Q3

REPORT INFORMATION
  Report Type: 
  Country: None (occurrence: None)
  Receive Date: 20080819
  Receipt Date: 20080814
  Transmission Date: 20090109
  Serious: Yes (Death, Hospitalization)
  Sender: FDA-Public Use
  Company Number: PHHY2008IL18109

PATIENT
  Age: 70 Year
  Sex: Male

DRUGS (1)
  1. SANDOSTATIN LAR [Suspect]
     Indication: CARCINOID SYNDROME
     Dosage: 30 MG EVERY 28 DAYS
     Dates: end: 20080721

REACTIONS (3)
  - CARDIOGENIC SHOCK [None]
  - PULMONARY HYPERTENSION [None]
  - STENT PLACEMENT [None]
